FAERS Safety Report 17930824 (Version 4)
Quarter: 2020Q3

REPORT INFORMATION
  Report Type: Report from Study
  Country: None (occurrence: NL)
  Receive Date: 20200623
  Receipt Date: 20200818
  Transmission Date: 20201103
  Serious: Yes (Hospitalization, Other)
  Sender: FDA-Public Use
  Company Number: NL-ABBVIE-20K-114-3455136-00

PATIENT
  Sex: Male

DRUGS (5)
  1. DUODOPA [Suspect]
     Active Substance: CARBIDOPA\LEVODOPA
     Indication: PARKINSON^S DISEASE
     Dosage: MD 5.5 CD 3.9 ED 3.0
     Route: 050
     Dates: start: 20200127
  2. RIVOTRIL [Concomitant]
     Active Substance: CLONAZEPAM
     Indication: HALLUCINATION
     Dosage: ONE PIECE AT 22:00
     Route: 048
     Dates: start: 20180101
  3. MADOPAR HBS [Concomitant]
     Active Substance: BENSERAZIDE HYDROCHLORIDE\LEVODOPA
     Indication: PARKINSON^S DISEASE
     Dosage: 2 CAPSULES AT 22:00
     Route: 048
     Dates: start: 20050101
  4. DUODOPA [Suspect]
     Active Substance: CARBIDOPA\LEVODOPA
  5. ROPINIROLE. [Concomitant]
     Active Substance: ROPINIROLE
     Indication: PARKINSON^S DISEASE
     Dosage: ONE PIECE AT 22:00
     Dates: start: 20150101

REACTIONS (3)
  - Intestinal haemorrhage [Recovered/Resolved]
  - Gastrointestinal disorder [Not Recovered/Not Resolved]
  - Rectal ulcer [Unknown]

NARRATIVE: CASE EVENT DATE: 2020
